FAERS Safety Report 17802131 (Version 1)
Quarter: 2020Q2

REPORT INFORMATION
  Report Type: Spontaneous
  Country: US (occurrence: US)
  Receive Date: 20200518
  Receipt Date: 20200518
  Transmission Date: 20200714
  Serious: No
  Sender: FDA-Public Use
  Company Number: None

PATIENT
  Sex: Female

DRUGS (1)
  1. ETHINYLESTRADIOL/ETONOGESTREL VAGINAL RING [Suspect]
     Active Substance: ETHINYL ESTRADIOL\ETONOGESTREL

REACTIONS (6)
  - Vulvovaginal injury [None]
  - Muscle spasms [None]
  - Complication associated with device [None]
  - Vulvovaginal swelling [None]
  - Dyspareunia [None]
  - Vulvovaginal discomfort [None]
